FAERS Safety Report 8525285-1 (Version None)
Quarter: 2012Q3

REPORT INFORMATION
  Report Type: 
  Country: None (occurrence: None)
  Receive Date: 20120720
  Receipt Date: 20120716
  Transmission Date: 20120928
  Serious: Yes (Death)
  Sender: FDA-Public Use
  Company Number: US-B.I. PHARMACEUTICALS,INC./RIDGEFIELD-2012-BP-15827BP

PATIENT
  Sex: Male

DRUGS (4)
  1. LASIX [Concomitant]
     Indication: DIURETIC THERAPY
  2. OXYGEN [Concomitant]
  3. PRADAXA [Suspect]
     Indication: ATRIAL FIBRILLATION
     Dosage: 300 MG
     Route: 048
     Dates: end: 20120612
  4. POTASSIUM CHLORIDE [Concomitant]
     Indication: SUPPLEMENTATION THERAPY

REACTIONS (2)
  - SWELLING [None]
  - MULTI-ORGAN FAILURE [None]
